FAERS Safety Report 15587312 (Version 1)
Quarter: 2018Q4

REPORT INFORMATION
  Report Type: Spontaneous
  Country: US (occurrence: US)
  Receive Date: 20181105
  Receipt Date: 20181105
  Transmission Date: 20190205
  Serious: No
  Sender: FDA-Public Use
  Company Number: US-BAYER-2018-203679

PATIENT
  Sex: Female

DRUGS (1)
  1. GADAVIST [Suspect]
     Active Substance: GADOBUTROL
     Indication: NUCLEAR MAGNETIC RESONANCE IMAGING
     Dosage: UNK UNK, ONCE
     Route: 042

REACTIONS (5)
  - Eye swelling [None]
  - Nausea [None]
  - Dyspnoea [None]
  - Dysphagia [None]
  - Lip swelling [None]

NARRATIVE: CASE EVENT DATE: 2018
